FAERS Safety Report 9964323 (Version 1)
Quarter: 2014Q1

REPORT INFORMATION
  Report Type: Report from Study
  Country: HU (occurrence: HU)
  Receive Date: 20140305
  Receipt Date: 20140305
  Transmission Date: 20141002
  Serious: Yes (Hospitalization)
  Sender: FDA-Public Use
  Company Number: HU-ASTRAZENECA-2014SE14576

PATIENT
  Age: 64 Year
  Sex: Male

DRUGS (1)
  1. SYMBICORT FORTE TURBUHALER [Suspect]
     Indication: CHRONIC OBSTRUCTIVE PULMONARY DISEASE
     Dosage: 9/320 MCG/DOSE, 1 PUFF, TWO TIMES A DAY
     Route: 055
     Dates: start: 20140124, end: 20140131

REACTIONS (2)
  - Pulmonary embolism [Recovered/Resolved]
  - Decreased appetite [Unknown]
